FAERS Safety Report 15062489 (Version 1)
Quarter: 2018Q2

REPORT INFORMATION
  Report Type: Spontaneous
  Country: US (occurrence: US)
  Receive Date: 20180625
  Receipt Date: 20180625
  Transmission Date: 20180711
  Serious: No
  Sender: FDA-Public Use
  Company Number: US-AMGEN-USASP2012011262

PATIENT
  Sex: Male

DRUGS (2)
  1. SENSIPAR [Suspect]
     Active Substance: CINACALCET HYDROCHLORIDE
     Indication: DIALYSIS
  2. PLAVIX [Concomitant]
     Active Substance: CLOPIDOGREL BISULFATE

REACTIONS (3)
  - Blood phosphorus abnormal [Unknown]
  - Diabetes mellitus [Not Recovered/Not Resolved]
  - Malaise [Unknown]
